FAERS Safety Report 4892233-5 (Version None)
Quarter: 2006Q1

REPORT INFORMATION
  Report Type: 
  Country: None (occurrence: None)
  Receive Date: 20060124
  Receipt Date: 20060116
  Transmission Date: 20060701
  Serious: Yes (Hospitalization)
  Sender: FDA-Public Use
  Company Number: 235505K05USA

PATIENT
  Age: 52 Year
  Sex: Female
  Weight: 51.2565 kg

DRUGS (1)
  1. REBIF [Suspect]
     Indication: MULTIPLE SCLEROSIS
     Dosage: 3 IN  1 WEEKS
     Dates: start: 20041001, end: 20050705

REACTIONS (3)
  - DIARRHOEA [None]
  - LIVER DISORDER [None]
  - URINARY TRACT INFECTION [None]
